FAERS Safety Report 11463655 (Version 1)
Quarter: 2015Q3

REPORT INFORMATION
  Report Type: Spontaneous
  Country: US (occurrence: US)
  Receive Date: 20150831
  Receipt Date: 20150831
  Transmission Date: 20151125
  Serious: No
  Sender: FDA-Public Use
  Company Number: US-ELI_LILLY_AND_COMPANY-US201104002162

PATIENT
  Sex: Male

DRUGS (2)
  1. CYMBALTA [Suspect]
     Active Substance: DULOXETINE HYDROCHLORIDE
     Indication: MUSCULOSKELETAL PAIN
     Dosage: 30 MG, QD
  2. NAPROXEN. [Concomitant]
     Active Substance: NAPROXEN
     Dosage: UNK, UNKNOWN

REACTIONS (1)
  - Abnormal sensation in eye [Recovered/Resolved]
